FAERS Safety Report 8134676-2 (Version None)
Quarter: 2012Q1

REPORT INFORMATION
  Report Type: 
  Country: None (occurrence: None)
  Receive Date: 20120214
  Receipt Date: 20120203
  Transmission Date: 20120608
  Serious: No
  Sender: FDA-Public Use
  Company Number: US-JNJFOC-20120112321

PATIENT
  Sex: Male
  Weight: 61.24 kg

DRUGS (4)
  1. DURAGESIC-100 [Suspect]
     Route: 062
     Dates: start: 20120101
  2. DURAGESIC-100 [Suspect]
     Indication: SURGERY
     Route: 062
     Dates: start: 20090401, end: 20100901
  3. DURAGESIC-100 [Suspect]
     Indication: BACK PAIN
     Route: 062
     Dates: start: 20120101
  4. DURAGESIC-100 [Suspect]
     Route: 062
     Dates: start: 20090401, end: 20100901

REACTIONS (1)
  - WRONG TECHNIQUE IN DRUG USAGE PROCESS [None]
